FAERS Safety Report 4327550-0 (Version None)
Quarter: 2004Q1

REPORT INFORMATION
  Report Type: 
  Country: None (occurrence: None)
  Receive Date: 20040325
  Receipt Date: 20040312
  Transmission Date: 20041129
  Serious: No
  Sender: FDA-Public Use
  Company Number: 04H-044-0253870-00

PATIENT

DRUGS (5)
  1. SODIUM CHLORIDE 0.9% [Suspect]
     Indication: FLUID REPLACEMENT
     Dosage: INTRAVENOUS
     Route: 042
  2. HAES-STERIL [Suspect]
     Indication: FLUID REPLACEMENT
     Dosage: 500 ML, INTRAVENOUS
     Route: 042
  3. BUPIVACAINE [Concomitant]
  4. MORPHINE [Concomitant]
  5. SEVOFLURANE [Concomitant]

REACTIONS (2)
  - HAEMORRHAGE [None]
  - POST PROCEDURAL COMPLICATION [None]
